FAERS Safety Report 24764369 (Version 2)
Quarter: 2025Q3

REPORT INFORMATION
  Report Type: Spontaneous
  Country: US (occurrence: US)
  Receive Date: 20241223
  Receipt Date: 20250802
  Transmission Date: 20251020
  Serious: Yes (Death, Hospitalization, Other)
  Sender: ALEXION PHARMACEUTICALS
  Company Number: US-ASTRAZENECA-202412USA015663US

PATIENT
  Age: 57 Year
  Sex: Male

DRUGS (16)
  1. CRESTOR [Suspect]
     Active Substance: ROSUVASTATIN CALCIUM
  2. OMEPRAZOLE [Suspect]
     Active Substance: OMEPRAZOLE
  3. METOPROLOL TARTRATE [Suspect]
     Active Substance: METOPROLOL TARTRATE
  4. AMITRIPTYLINE [Suspect]
     Active Substance: AMITRIPTYLINE
  5. AMLODIPINE [Suspect]
     Active Substance: AMLODIPINE BESYLATE
  6. ALCOHOL [Suspect]
     Active Substance: ALCOHOL
  7. VENLAFAXINE [Suspect]
     Active Substance: VENLAFAXINE HYDROCHLORIDE
  8. HYDROXYZINE [Suspect]
     Active Substance: HYDROXYZINE HYDROCHLORIDE
  9. DIAZEPAM [Suspect]
     Active Substance: DIAZEPAM
  10. ACETAMINOPHEN [Suspect]
     Active Substance: ACETAMINOPHEN
  11. RISPERIDONE [Suspect]
     Active Substance: RISPERIDONE
  12. TAMSULOSIN [Suspect]
     Active Substance: TAMSULOSIN
  13. ONDANSETRON [Suspect]
     Active Substance: ONDANSETRON
  14. OXCARBAZEPINE [Suspect]
     Active Substance: OXCARBAZEPINE
  15. VALSARTAN [Suspect]
     Active Substance: VALSARTAN
  16. IBUPROFEN [Suspect]
     Active Substance: IBUPROFEN

REACTIONS (2)
  - Toxicity to various agents [Fatal]
  - Completed suicide [Fatal]
